FAERS Safety Report 11933234 (Version 1)
Quarter: 2016Q1

REPORT INFORMATION
  Report Type: Spontaneous
  Country: US (occurrence: US)
  Receive Date: 20160121
  Receipt Date: 20160121
  Transmission Date: 20160526
  Serious: Yes (Hospitalization, Other)
  Sender: FDA-Public Use
  Company Number: US-GLENMARK PHARMACEUTICALS INC, USA.-2015GMK021614

PATIENT

DRUGS (12)
  1. METFORMIN [Concomitant]
     Active Substance: METFORMIN HYDROCHLORIDE
     Indication: DIABETES MELLITUS
     Dosage: 1000 MG, BID
     Route: 048
     Dates: start: 1996
  2. LISINOPRIL. [Concomitant]
     Active Substance: LISINOPRIL
     Indication: HYPERTENSION
     Dosage: 20 MG, BID
     Route: 048
  3. OMEPRAZOLE. [Concomitant]
     Active Substance: OMEPRAZOLE
     Indication: GASTROOESOPHAGEAL REFLUX DISEASE
     Dosage: UNK, QD
     Route: 048
     Dates: start: 2010
  4. HUMALOG [Concomitant]
     Active Substance: INSULIN LISPRO
     Indication: DIABETES MELLITUS
     Dosage: 30-40 UNITS, TID
     Route: 058
  5. KEPPRA [Concomitant]
     Active Substance: LEVETIRACETAM
     Indication: SEIZURE
     Dosage: 500 MG, BID
     Route: 048
     Dates: start: 1991
  6. LANTUS [Concomitant]
     Active Substance: INSULIN GLARGINE
     Indication: DIABETES MELLITUS
     Dosage: 60 UNITS, BID
     Route: 058
  7. AMELOTIN [Concomitant]
     Indication: HYPERTENSION
     Dosage: 5 MG, QD
     Route: 048
  8. DESMOPRESSIN [Concomitant]
     Active Substance: DESMOPRESSIN
     Indication: URINARY INCONTINENCE
     Dosage: SPRAY EACH NOSTRIL, BID
     Route: 045
     Dates: start: 1991
  9. IMIQUIMOD. [Suspect]
     Active Substance: IMIQUIMOD
     Indication: SQUAMOUS CELL CARCINOMA
     Dosage: UNK OD, APPLY CREAM ONCE DAILY FOR 5 DAYS THEN SKIP 2 DAYS (LEAVE IT ON FOR 24 HOURS)
     Route: 061
     Dates: start: 20151221, end: 20151223
  10. LASIX [Concomitant]
     Active Substance: FUROSEMIDE
     Indication: CARDIAC FAILURE CONGESTIVE
     Dosage: UNK, QD
     Route: 048
     Dates: start: 2013
  11. LEVOTHYROXINE. [Concomitant]
     Active Substance: LEVOTHYROXINE
     Indication: HYPOTHYROIDISM
     Dosage: UNK UNK, QD
     Route: 048
     Dates: start: 1991
  12. HYDROCORTISONE. [Concomitant]
     Active Substance: HYDROCORTISONE
     Indication: ADDISON^S DISEASE
     Dosage: SIX 5 MG IN THE MORNING FOUR 5 MG AT NIGHT, BID
     Route: 048
     Dates: start: 1991

REACTIONS (13)
  - Malaise [Recovered/Resolved]
  - Incorrect drug administration duration [Recovered/Resolved]
  - Aspiration [Recovered/Resolved]
  - Pneumonia bacterial [Recovered/Resolved]
  - Pyrexia [Recovered/Resolved]
  - Influenza like illness [Recovered/Resolved]
  - Blister [Recovered/Resolved]
  - Off label use [Unknown]
  - Inflammation [Recovered/Resolved]
  - Seizure [Recovered/Resolved]
  - Application site pain [Recovered/Resolved]
  - Adrenocortical insufficiency acute [Recovered/Resolved]
  - Nausea [Recovered/Resolved]

NARRATIVE: CASE EVENT DATE: 20151221
